FAERS Safety Report 18338056 (Version 2)
Quarter: 2021Q1

REPORT INFORMATION
  Report Type: Spontaneous
  Country: US (occurrence: US)
  Receive Date: 20201002
  Receipt Date: 20210101
  Transmission Date: 20210419
  Serious: Yes (Life-Threatening, Hospitalization)
  Sender: FDA-Public Use
  Company Number: US-TEVA-2020-US-1833690

PATIENT
  Age: 72 Year
  Sex: Female
  Weight: 84 kg

DRUGS (11)
  1. OLANZAPINE. [Concomitant]
     Active Substance: OLANZAPINE
     Dates: start: 202005
  2. CAPECITABINE. [Suspect]
     Active Substance: CAPECITABINE
     Indication: CHEMOTHERAPY
     Route: 065
     Dates: start: 20200803
  3. PROCHLORPERAZINE MALEATE. [Concomitant]
     Active Substance: PROCHLORPERAZINE MALEATE
     Dates: start: 20200806
  4. WARFARIN [Concomitant]
     Active Substance: WARFARIN
     Dates: start: 2019
  5. MORPHINE [Concomitant]
     Active Substance: MORPHINE
     Dates: start: 2019
  6. MACROBID [Concomitant]
     Active Substance: NITROFURANTOIN\NITROFURANTOIN MONOHYDRATE
     Dates: start: 20200723, end: 20200729
  7. PYRIDOXINE [Concomitant]
     Active Substance: PYRIDOXINE
     Dates: start: 20191021
  8. CHOLECALCIFEROL [Concomitant]
     Active Substance: CHOLECALCIFEROL
  9. PERCOCET [Concomitant]
     Active Substance: ACETAMINOPHEN\OXYCODONE HYDROCHLORIDE
  10. AMIODARONE [Concomitant]
     Active Substance: AMIODARONE
     Dates: start: 2019
  11. CALCIUM 600+D3 PLUS MINERALS [Concomitant]

REACTIONS (6)
  - Abdominal pain [Recovered/Resolved]
  - Diarrhoea [Recovered/Resolved]
  - Enteritis [Recovered/Resolved]
  - Neutropenia [Recovered/Resolved]
  - Ileus [Recovered/Resolved]
  - Urinary tract infection [Recovered/Resolved]

NARRATIVE: CASE EVENT DATE: 20200817
